FAERS Safety Report 6845155-4 (Version None)
Quarter: 2010Q3

REPORT INFORMATION
  Report Type: 
  Country: None (occurrence: None)
  Receive Date: 20100715
  Receipt Date: 20070813
  Transmission Date: 20110219
  Serious: No
  Sender: FDA-Public Use
  Company Number: US-PFIZER INC-2007068552

PATIENT
  Sex: Female
  Weight: 44.5 kg

DRUGS (8)
  1. CHANTIX [Suspect]
     Indication: SMOKING CESSATION THERAPY
     Dosage: EVERY DAY
  2. ERLOTINIB [Concomitant]
  3. ERLOTINIB [Concomitant]
  4. COREG [Concomitant]
  5. ALDACTONE [Concomitant]
  6. EVISTA [Concomitant]
  7. AVASTIN [Concomitant]
  8. DRUG, UNSPECIFIED [Concomitant]
     Indication: LUNG NEOPLASM MALIGNANT

REACTIONS (2)
  - ASTHENIA [None]
  - NAUSEA [None]
